FAERS Safety Report 9014715 (Version 2)
Quarter: 2013Q3

REPORT INFORMATION
  Report Type: Report from Study
  Country: JP (occurrence: JP)
  Receive Date: 20130115
  Receipt Date: 20130809
  Transmission Date: 20140515
  Serious: Yes (Other)
  Sender: FDA-Public Use
  Company Number: JP-VERTEX PHARMACEUTICALS INC.-2013-000591

PATIENT
  Age: 72 Year
  Sex: Female

DRUGS (6)
  1. VX-950 (TELAPREVIR) [Suspect]
     Indication: CHRONIC HEPATITIS C
     Dosage: 1500 MG, QD
     Route: 048
     Dates: start: 20120918, end: 20121023
  2. PEGINTRON [Suspect]
     Indication: CHRONIC HEPATITIS C
     Dosage: 50 ?G, QW
     Route: 058
     Dates: start: 20120918, end: 20121023
  3. REBETOL [Suspect]
     Indication: CHRONIC HEPATITIS C
     Dosage: 600 MG, QD
     Route: 048
     Dates: start: 20120918, end: 20121030
  4. URSO [Concomitant]
     Dosage: 600 MG, QD
     Route: 048
  5. ALDACTONE A [Concomitant]
     Dosage: 25 MG, QD
     Route: 048
  6. FLUITRAN [Concomitant]
     Dosage: 2 MG, QD
     Route: 048

REACTIONS (1)
  - Neutrophil count decreased [Recovered/Resolved]
